FAERS Safety Report 8575865-2 (Version None)
Quarter: 2012Q3

REPORT INFORMATION
  Report Type: 
  Country: None (occurrence: None)
  Receive Date: 20120807
  Receipt Date: 20120727
  Transmission Date: 20120928
  Serious: Yes (Hospitalization, Other)
  Sender: FDA-Public Use
  Company Number: US-CELGENEUS-163-21880-12064032

PATIENT
  Sex: Female

DRUGS (10)
  1. MULTI-VITAMINS [Concomitant]
     Route: 065
  2. ATENOLOL [Concomitant]
     Route: 065
  3. FERREX [Concomitant]
     Route: 065
  4. ASPIRIN [Concomitant]
     Dosage: 81 MILLIGRAM
     Route: 065
  5. POTASSIUM [Concomitant]
     Route: 065
  6. FISH OIL [Concomitant]
     Route: 065
  7. REVLIMID [Suspect]
     Indication: MYELODYSPLASTIC SYNDROME
     Dosage: 10 MILLIGRAM
     Route: 048
     Dates: start: 20120608
  8. PROBIOTIC [Concomitant]
     Route: 065
  9. METAMUCIL-2 [Concomitant]
     Route: 065
  10. VITAMIN D [Concomitant]
     Route: 065

REACTIONS (1)
  - CEREBRAL THROMBOSIS [None]
